FAERS Safety Report 4589046-0 (Version None)
Quarter: 2005Q1

REPORT INFORMATION
  Report Type: 
  Country: None (occurrence: None)
  Receive Date: 20050125
  Receipt Date: 20041014
  Transmission Date: 20050727
  Serious: No
  Sender: FDA-Public Use
  Company Number: USA041081190

PATIENT
  Age: 54 Year
  Sex: Female

DRUGS (3)
  1. FORTEO [Suspect]
     Indication: OSTEOPOROSIS
     Dates: start: 20040601
  2. CELLCEPT [Concomitant]
  3. PREDNISONE [Concomitant]

REACTIONS (3)
  - FALL [None]
  - INJECTION SITE WARMTH [None]
  - LUMBAR VERTEBRAL FRACTURE [None]
